FAERS Safety Report 4748210-8 (Version None)
Quarter: 2005Q3

REPORT INFORMATION
  Report Type: 
  Country: None (occurrence: None)
  Receive Date: 20050818
  Receipt Date: 20050808
  Transmission Date: 20060218
  Serious: Yes (Hospitalization)
  Sender: FDA-Public Use
  Company Number: FR-BRISTOL-MYERS SQUIBB COMPANY-13068549

PATIENT
  Age: 50 Year
  Sex: Male
  Weight: 88 kg

DRUGS (3)
  1. COAPROVEL TABS [Suspect]
     Indication: HYPERTENSION
     Route: 048
     Dates: end: 20050701
  2. LAMISIL [Suspect]
     Indication: ONYCHOMYCOSIS
     Dates: start: 20050415, end: 20050701
  3. LOGIMAX [Suspect]
     Indication: HYPERTENSION
     Dates: end: 20050701

REACTIONS (5)
  - DIVERTICULAR PERFORATION [None]
  - ESCHERICHIA INFECTION [None]
  - MORGANELLA INFECTION [None]
  - SEPTIC SHOCK [None]
  - THROMBOCYTOPENIA [None]
